FAERS Safety Report 17727563 (Version 1)
Quarter: 2020Q2

REPORT INFORMATION
  Report Type: Spontaneous
  Country: FR (occurrence: FR)
  Receive Date: 20200430
  Receipt Date: 20200430
  Transmission Date: 20200714
  Serious: Yes (Other)
  Sender: FDA-Public Use
  Company Number: FR-MYLANLABS-2020M1042678

PATIENT
  Age: 51 Year
  Sex: Male

DRUGS (14)
  1. TRANXENE [Suspect]
     Active Substance: CLORAZEPATE DIPOTASSIUM
     Indication: PRODUCT USED FOR UNKNOWN INDICATION
     Dosage: 10 MILLIGRAM, TOTAL
     Route: 048
     Dates: start: 20191227, end: 20191227
  2. DESLORATADINE. [Suspect]
     Active Substance: DESLORATADINE
     Indication: PRODUCT USED FOR UNKNOWN INDICATION
     Dosage: UNK
     Route: 048
     Dates: start: 20191227, end: 20191227
  3. NOZINAN                            /00038601/ [Concomitant]
     Active Substance: LEVOMEPROMAZINE
     Indication: AUTISM SPECTRUM DISORDER
     Dosage: MEDICAMENT NON ADMINISTR?
     Route: 048
  4. PRAVASTATINE                       /00880402/ [Concomitant]
     Active Substance: PRAVASTATIN SODIUM
     Indication: PRODUCT USED FOR UNKNOWN INDICATION
     Dosage: MEDICAMENT NON ADMINISTR?
     Route: 048
  5. RISPERIDONE. [Concomitant]
     Active Substance: RISPERIDONE
     Indication: AUTISM SPECTRUM DISORDER
     Dosage: MEDICAMENT NON ADMINISTR?
     Route: 048
  6. GUTRON [Suspect]
     Active Substance: MIDODRINE
     Indication: PRODUCT USED FOR UNKNOWN INDICATION
     Dosage: 2.5 MILLIGRAM, TOTAL
     Route: 048
     Dates: start: 20191227, end: 20191227
  7. LEPTICUR [Concomitant]
     Active Substance: TROPATEPINE HYDROCHLORIDE
     Indication: PRODUCT USED FOR UNKNOWN INDICATION
     Dosage: MEDICAMENT NON ADMINISTR?
     Route: 048
  8. SULFARLEM S [Concomitant]
     Active Substance: ANETHOLTRITHION
     Indication: PARKINSONISM
     Dosage: MEDICAMENT NON ADMINISTR?
     Route: 048
  9. HALOPERIDOL. [Suspect]
     Active Substance: HALOPERIDOL
     Indication: PRODUCT USED FOR UNKNOWN INDICATION
     Dosage: 10 MILLIGRAM, QD
     Route: 048
     Dates: start: 20191227, end: 20191227
  10. ACIDE VALPROIQUE [Concomitant]
     Active Substance: VALPROIC ACID
     Indication: AUTISM SPECTRUM DISORDER
     Dosage: MEDICAMENT NON ADMINISTR?
     Route: 048
  11. TEGRETOL [Suspect]
     Active Substance: CARBAMAZEPINE
     Indication: PRODUCT USED FOR UNKNOWN INDICATION
     Dosage: 400 MILLIGRAM, TOTAL
     Route: 048
     Dates: start: 20191227, end: 20191227
  12. DIPIPERON [Concomitant]
     Active Substance: PIPAMPERONE
     Indication: AUTISM SPECTRUM DISORDER
     Dosage: MEDICAMENT NON ADMINISTR?
     Route: 048
     Dates: start: 20191127
  13. ROSUVASTATIN. [Suspect]
     Active Substance: ROSUVASTATIN
     Indication: PRODUCT USED FOR UNKNOWN INDICATION
     Dosage: 5 MILLIGRAM, TOTAL
     Route: 048
     Dates: start: 20191227, end: 20191227
  14. LOXAPAC                            /00401801/ [Suspect]
     Active Substance: LOXAPINE
     Indication: PRODUCT USED FOR UNKNOWN INDICATION
     Dosage: 25 MILLIGRAM, TOTAL
     Route: 048
     Dates: start: 20191227, end: 20191227

REACTIONS (7)
  - Toxic skin eruption [Recovered/Resolved]
  - Dermatitis bullous [Recovered/Resolved]
  - Wrong product administered [Recovered/Resolved]
  - Wrong patient received product [Recovered/Resolved]
  - Product administration error [Recovered/Resolved]
  - Rash maculo-papular [Recovered/Resolved]
  - Pruritus [Recovered/Resolved]

NARRATIVE: CASE EVENT DATE: 20191227
